FAERS Safety Report 9705066 (Version 4)
Quarter: 2015Q1

REPORT INFORMATION
  Report Type: Spontaneous
  Country: US (occurrence: US)
  Receive Date: 20131122
  Receipt Date: 20150305
  Transmission Date: 20150721
  Serious: Yes (Life-Threatening, Hospitalization)
  Sender: FDA-Public Use
  Company Number: US-BAYER-2013-139688

PATIENT
  Age: 23 Year
  Sex: Female
  Weight: 58.96 kg

DRUGS (1)
  1. MIRENA [Suspect]
     Active Substance: LEVONORGESTREL
     Indication: CONTRACEPTION
     Dosage: 20 MCG/24HR, CONT
     Route: 015
     Dates: start: 200311, end: 200411

REACTIONS (15)
  - Device defective [None]
  - Procedural pain [Not Recovered/Not Resolved]
  - Drug ineffective [None]
  - Device issue [None]
  - Abdominal pain lower [None]
  - Anxiety [None]
  - Uterine scar [None]
  - Pelvic pain [None]
  - Pregnancy with contraceptive device [Recovered/Resolved]
  - General physical health deterioration [None]
  - Device expulsion [None]
  - Injury [None]
  - Emotional distress [None]
  - Anhedonia [None]
  - Depression [None]

NARRATIVE: CASE EVENT DATE: 200402
